FAERS Safety Report 7282178-8 (Version None)
Quarter: 2011Q1

REPORT INFORMATION
  Report Type: 
  Country: None (occurrence: None)
  Receive Date: 20110209
  Receipt Date: 20110201
  Transmission Date: 20110831
  Serious: Yes (Hospitalization)
  Sender: FDA-Public Use
  Company Number: FR-BIOGENIDEC-2010BI013172

PATIENT
  Age: 35 Year
  Sex: Female
  Weight: 60 kg

DRUGS (5)
  1. TYSABRI [Suspect]
     Indication: MULTIPLE SCLEROSIS
     Route: 042
     Dates: start: 20080430, end: 20090923
  2. LUTENYL [Concomitant]
     Indication: PREMENSTRUAL SYNDROME
  3. ALFUZOSINE [Concomitant]
     Indication: URINARY TRACT DISORDER
     Dates: start: 20070913
  4. PHENYTOIN [Concomitant]
     Indication: NEURALGIA
     Dates: start: 20070913
  5. CLONAZEPAM [Concomitant]
     Indication: NEURALGIA
     Dates: start: 20070913

REACTIONS (1)
  - HEPATITIS CHOLESTATIC [None]
